FAERS Safety Report 17160719 (Version 1)
Quarter: 2019Q4

REPORT INFORMATION
  Report Type: Spontaneous
  Country: AU (occurrence: AU)
  Receive Date: 20191216
  Receipt Date: 20191216
  Transmission Date: 20200122
  Serious: Yes (Hospitalization)
  Sender: FDA-Public Use
  Company Number: AU-AMNEAL PHARMACEUTICALS-2019-AMRX-02771

PATIENT
  Age: 50 Year
  Sex: Male

DRUGS (24)
  1. OXYBUTYNIN. [Concomitant]
     Active Substance: OXYBUTYNIN CHLORIDE
     Indication: NOCTURIA
     Dosage: UNK
     Route: 065
     Dates: start: 20191024
  2. METOCLOPRAMIDE. [Concomitant]
     Active Substance: METOCLOPRAMIDE
     Indication: NAUSEA
     Dosage: 10MG AS REQUIRED
     Route: 048
     Dates: start: 20190617
  3. CHLORVESCENT [POTASSIUM CHLORIDE] [Concomitant]
     Indication: HYPOKALAEMIA
     Dosage: 3 DOSAGE FORM
     Route: 065
     Dates: start: 20191020, end: 20191020
  4. VALACICLOVIR [Concomitant]
     Active Substance: VALACYCLOVIR HYDROCHLORIDE
     Indication: PROPHYLAXIS
     Dosage: UNK
     Route: 048
  5. PANADOL [Concomitant]
     Active Substance: ACETAMINOPHEN
     Indication: ANALGESIC THERAPY
     Dosage: UNK, 1GM AS REQUIRED
     Route: 048
     Dates: start: 2019
  6. ONDANSETRON [Concomitant]
     Active Substance: ONDANSETRON
     Indication: NAUSEA
     Dosage: 4MG AS REQUIRED
     Route: 048
     Dates: start: 20190722
  7. ONDANSETRON [Concomitant]
     Active Substance: ONDANSETRON
     Indication: VOMITING
  8. APREPITANT. [Concomitant]
     Active Substance: APREPITANT
     Indication: NAUSEA
     Dosage: 165 MILLIGRAM STAT
     Route: 042
     Dates: start: 20191011, end: 20191011
  9. SLOW K [Concomitant]
     Active Substance: POTASSIUM CHLORIDE
     Indication: HYPOKALAEMIA
     Dosage: 2 DOSAGE FORM
     Route: 048
     Dates: start: 20191020, end: 20191020
  10. CYCLOPHOSPHAMIDE. [Suspect]
     Active Substance: CYCLOPHOSPHAMIDE
     Indication: T-CELL DEPLETION
     Dosage: 860 MILLIGRAM, DAILY
     Route: 042
     Dates: start: 20191009, end: 20191011
  11. FLUDARABINE [Suspect]
     Active Substance: FLUDARABINE PHOSPHATE
     Indication: T-CELL DEPLETION
     Dosage: 52.5 MILLIGRAM, DAILY
     Route: 042
     Dates: start: 20191009, end: 20191011
  12. METOCLOPRAMIDE. [Concomitant]
     Active Substance: METOCLOPRAMIDE
     Indication: VOMITING
  13. DOCUSATE;SENNA [Concomitant]
     Indication: PROPHYLAXIS
     Dosage: 2 DOSAGE FORM, QD, 50-80MG
     Route: 048
     Dates: start: 20190919
  14. FLUCONAZOLE. [Concomitant]
     Active Substance: FLUCONAZOLE
     Indication: PROPHYLAXIS
     Dosage: 1 DOSAGE FORM, QD
     Route: 048
     Dates: start: 20190919
  15. TAPENTADOL [Concomitant]
     Active Substance: TAPENTADOL
     Indication: ANALGESIC THERAPY
     Dosage: 2 DOSAGE FORM, QD, 200MG 2D IN D
     Route: 048
     Dates: start: 2019
  16. TRIMETHOPRIM SULFAMETHOXAZOLE [Concomitant]
     Active Substance: SULFAMETHOXAZOLE\TRIMETHOPRIM
     Indication: PROPHYLAXIS
     Dosage: 2 DOSAGE FORM, QD, 160-800MG
     Route: 048
     Dates: start: 20190617
  17. CYCLIZINE [Concomitant]
     Active Substance: CYCLIZINE
     Indication: NAUSEA
     Dosage: 25 MILLIGRAM, TID
     Route: 048
     Dates: start: 20191010
  18. ENTECAVIR. [Concomitant]
     Active Substance: ENTECAVIR
     Indication: PROPHYLAXIS
     Dosage: UNK
     Route: 048
  19. PANTOPRAZOLE [Concomitant]
     Active Substance: PANTOPRAZOLE
     Indication: GASTROOESOPHAGEAL REFLUX DISEASE
     Dosage: 1 DOSAGE FORM, QD
     Route: 048
     Dates: start: 2016
  20. OXYCODONE [Concomitant]
     Active Substance: OXYCODONE
     Indication: ANALGESIC THERAPY
     Dosage: UNK, 5MG AS REQUIRED
     Route: 048
     Dates: start: 20190902
  21. PIPERACILLIN AND TAZOBACTAM [Concomitant]
     Active Substance: PIPERACILLIN SODIUM\TAZOBACTAM SODIUM
     Indication: FEBRILE NEUTROPENIA
     Dosage: 4 DOSAGE FORM, QD, 4.5GM
     Route: 042
     Dates: start: 20190926, end: 20191001
  22. PIPERACILLIN AND TAZOBACTAM [Concomitant]
     Active Substance: PIPERACILLIN SODIUM\TAZOBACTAM SODIUM
     Indication: CYTOKINE RELEASE SYNDROME
     Dosage: 4 DOSAGE FORM, QD, 4.5GM
     Route: 042
     Dates: start: 20191017, end: 20191021
  23. AMOXICILLIN CLAVULANIC ACID [Concomitant]
     Active Substance: AMOXICILLIN\CLAVULANIC ACID
     Indication: PROPHYLAXIS
     Dosage: 2 DOSAGE FORM, QD, 875-125 MG
     Route: 048
     Dates: start: 20190919
  24. CLEXANE [Concomitant]
     Active Substance: ENOXAPARIN SODIUM
     Indication: PROPHYLAXIS
     Dosage: 40MG AS REQUIRED
     Route: 058
     Dates: start: 20191016, end: 20191022

REACTIONS (1)
  - Periorbital cellulitis [Not Recovered/Not Resolved]

NARRATIVE: CASE EVENT DATE: 20191030
